FAERS Safety Report 7053389-1 (Version None)
Quarter: 2010Q4

REPORT INFORMATION
  Report Type: 
  Country: None (occurrence: None)
  Receive Date: 20101020
  Receipt Date: 20101001
  Transmission Date: 20110411
  Serious: No
  Sender: FDA-Public Use
  Company Number: US-MYLANLABS-2010S1018064

PATIENT
  Age: 46 Year
  Sex: Female

DRUGS (2)
  1. LAMICTAL [Suspect]
     Indication: EPILEPSY
  2. LAMOTRIGINE [Suspect]
     Indication: EPILEPSY
     Route: 048
     Dates: start: 20100810

REACTIONS (5)
  - DIZZINESS [None]
  - FALL [None]
  - GAIT DISTURBANCE [None]
  - THROAT IRRITATION [None]
  - VISION BLURRED [None]
